FAERS Safety Report 8293962-6 (Version None)
Quarter: 2012Q2

REPORT INFORMATION
  Report Type: 
  Country: None (occurrence: None)
  Receive Date: 20120418
  Receipt Date: 20120413
  Transmission Date: 20120825
  Serious: Yes (Other)
  Sender: FDA-Public Use
  Company Number: US-PFIZER INC-2012093493

PATIENT
  Sex: Male

DRUGS (1)
  1. EFFEXOR XR [Suspect]
     Dosage: UNK
     Dates: end: 20120313

REACTIONS (3)
  - ROAD TRAFFIC ACCIDENT [None]
  - ABNORMAL BEHAVIOUR [None]
  - THERAPY CESSATION [None]
